FAERS Safety Report 8545705 (Version 4)
Quarter: 2013Q1

REPORT INFORMATION
  Report Type: Report from Study
  Country: CA (occurrence: CA)
  Receive Date: 20120503
  Receipt Date: 20130225
  Transmission Date: 20140127
  Serious: Yes (Other)
  Sender: FDA-Public Use
  Company Number: CA-ROCHE-1064412

PATIENT
  Age: 59 None
  Sex: Female
  Weight: 95 kg

DRUGS (7)
  1. ACTEMRA [Suspect]
     Indication: RHEUMATOID ARTHRITIS
     Route: 042
     Dates: start: 20120105
  2. ACTEMRA [Suspect]
     Route: 042
     Dates: start: 20120229
  3. ACTEMRA [Suspect]
     Route: 042
     Dates: start: 20120329
  4. ACTEMRA [Suspect]
     Route: 042
     Dates: start: 20120426
  5. METHOTREXATE [Concomitant]
  6. PREDNISONE [Concomitant]
  7. PLAQUENIL [Concomitant]

REACTIONS (4)
  - Suicide attempt [Recovered/Resolved]
  - Thrombophlebitis [Recovering/Resolving]
  - Abdominal pain [Not Recovered/Not Resolved]
  - Weight increased [Unknown]
